FAERS Safety Report 20289553 (Version 2)
Quarter: 2022Q1

REPORT INFORMATION
  Report Type: Spontaneous
  Country: IT (occurrence: IT)
  Receive Date: 20220104
  Receipt Date: 20220115
  Transmission Date: 20220424
  Serious: Yes (Hospitalization, Other)
  Sender: FDA-Public Use
  Company Number: IT-NOVARTISPH-NVSC2021IT300880

PATIENT
  Sex: Female
  Weight: 64 kg

DRUGS (6)
  1. TACROLIMUS [Suspect]
     Active Substance: TACROLIMUS
     Indication: Renal transplant
     Dosage: UNK
     Route: 065
     Dates: start: 20160927, end: 20200423
  2. MYCOPHENOLATE SODIUM [Concomitant]
     Active Substance: MYCOPHENOLATE SODIUM
     Indication: Immunosuppressant drug therapy
     Dosage: 360 MG, TOTAL DAILY DOSE
     Route: 065
     Dates: start: 20160331, end: 20200423
  3. MEDROL [Concomitant]
     Active Substance: METHYLPREDNISOLONE
     Indication: Immunosuppressant drug therapy
     Dosage: 4 MG, TOTAL DAILY DOSE
     Route: 065
     Dates: start: 20160707, end: 20200423
  4. MEDROL [Concomitant]
     Active Substance: METHYLPREDNISOLONE
     Dosage: 12 MG, TOTAL DAILY DOSE
     Route: 065
     Dates: start: 20200423, end: 20200504
  5. MEDROL [Concomitant]
     Active Substance: METHYLPREDNISOLONE
     Dosage: 11 MG, TOTAL DAILY DOSE
     Route: 065
     Dates: start: 20200505, end: 20201105
  6. MEDROL [Concomitant]
     Active Substance: METHYLPREDNISOLONE
     Dosage: 6 MG, TOTAL DAILY DOSE
     Route: 065
     Dates: start: 20201106

REACTIONS (1)
  - Interstitial lung disease [Recovered/Resolved]

NARRATIVE: CASE EVENT DATE: 20200212
